FAERS Safety Report 19921274 (Version 1)
Quarter: 2021Q4

REPORT INFORMATION
  Report Type: Spontaneous
  Country: US (occurrence: US)
  Receive Date: 20211005
  Receipt Date: 20211005
  Transmission Date: 20220303
  Serious: No
  Sender: FDA-Public Use
  Company Number: US-ADAMAS PHARMA, LLC-2021ADA01860

PATIENT
  Age: 73 Year
  Sex: Female
  Weight: 65.5 kg

DRUGS (2)
  1. GOCOVRI [Suspect]
     Active Substance: AMANTADINE
     Dosage: 68.5 MG, 1X/DAY AT BEDTIME
     Route: 048
     Dates: start: 20210629, end: 2021
  2. GOCOVRI [Suspect]
     Active Substance: AMANTADINE
     Dosage: 68.5 MG, EVERY OTHER DAY
     Route: 048
     Dates: start: 2021, end: 20210726

REACTIONS (3)
  - Parkinson^s disease [Recovering/Resolving]
  - Anxiety [Unknown]
  - Depression [Unknown]

NARRATIVE: CASE EVENT DATE: 20210712
